FAERS Safety Report 10031534 (Version 2)
Quarter: 2014Q1

REPORT INFORMATION
  Report Type: Spontaneous
  Country: IT (occurrence: IT)
  Receive Date: 20140324
  Receipt Date: 20140328
  Transmission Date: 20141002
  Serious: Yes (Hospitalization, Other)
  Sender: FDA-Public Use
  Company Number: IT-PFIZER INC-2014076363

PATIENT
  Age: 65 Year
  Sex: Male

DRUGS (1)
  1. AMIODARONE HCL [Suspect]
     Indication: ATRIAL FIBRILLATION
     Dosage: 200 MG/ DAY
     Route: 065
     Dates: start: 2008, end: 2010

REACTIONS (4)
  - Pulmonary toxicity [Recovered/Resolved]
  - Pneumonitis [Recovered/Resolved]
  - Acute pulmonary oedema [Recovered/Resolved]
  - Respiratory acidosis [Unknown]
